FAERS Safety Report 25441177 (Version 2)
Quarter: 2025Q3

REPORT INFORMATION
  Report Type: Spontaneous
  Country: JP (occurrence: JP)
  Receive Date: 20250616
  Receipt Date: 20250807
  Transmission Date: 20251021
  Serious: Yes (Hospitalization)
  Sender: ELI LILLY AND COMPANY
  Company Number: JP-ELI_LILLY_AND_COMPANY-JP202412000914

PATIENT
  Age: 60 Year
  Sex: Female
  Weight: 50.8 kg

DRUGS (4)
  1. VERZENIO [Suspect]
     Active Substance: ABEMACICLIB
     Indication: Breast cancer recurrent
     Dosage: 100 MG, DAILY
     Route: 048
     Dates: start: 20220922, end: 20221005
  2. VERZENIO [Suspect]
     Active Substance: ABEMACICLIB
     Dosage: 100 MG, BID
     Route: 048
     Dates: start: 20221006, end: 20221208
  3. FASLODEX [Concomitant]
     Active Substance: FULVESTRANT
     Indication: Breast cancer recurrent
     Route: 030
     Dates: start: 20220922, end: 20230831
  4. BEPRIDIL [Concomitant]
     Active Substance: BEPRIDIL
     Indication: Arrhythmia
     Route: 048
     Dates: start: 20211026

REACTIONS (1)
  - Tubulointerstitial nephritis [Recovered/Resolved]

NARRATIVE: CASE EVENT DATE: 20221207
